FAERS Safety Report 8614214 (Version 2)
Quarter: 2012Q4

REPORT INFORMATION
  Report Type: 
  Country: GB (occurrence: GB)
  Receive Date: 20120614
  Receipt Date: 20121213
  Transmission Date: 20130627
  Serious: Yes (Life-Threatening, Other)
  Sender: FDA-Public Use
  Company Number: GB-PFIZER INC-2012139560

PATIENT
  Age: 36 Year
  Sex: Female

DRUGS (6)
  1. CHAMPIX [Suspect]
     Indication: SMOKING CESSATION THERAPY
     Dosage: UNK
     Route: 048
     Dates: start: 20120502, end: 20120516
  2. AMISULPRIDE [Concomitant]
     Indication: PSYCHOSIS
     Dosage: 1600 mg, 1x/day
     Route: 048
     Dates: start: 20120509
  3. FLUOXETINE [Concomitant]
     Indication: DEPRESSION
     Dosage: 20 mg, 1x/day
     Route: 048
  4. OMEPRAZOLE [Concomitant]
     Dosage: 20 mg, 1x/day
     Route: 048
  5. FERROUS GLUCONATE [Concomitant]
     Dosage: 600 mg, 1x/day
     Route: 048
  6. ORPHENADRINE [Concomitant]
     Dosage: 100 mg, 1x/day
     Route: 048

REACTIONS (2)
  - Electrocardiogram QT prolonged [Recovered/Resolved]
  - Ventricular extrasystoles [Recovered/Resolved with Sequelae]
